FAERS Safety Report 9827383 (Version 6)
Quarter: 2014Q2

REPORT INFORMATION
  Report Type: Spontaneous
  Country: US (occurrence: US)
  Receive Date: 20140117
  Receipt Date: 20140612
  Transmission Date: 20141212
  Serious: No
  Sender: FDA-Public Use
  Company Number: US-PFIZER INC-2014012517

PATIENT
  Age: 52 Year
  Sex: Female
  Weight: 46.3 kg

DRUGS (2)
  1. XANAX [Suspect]
     Indication: PANIC DISORDER
     Dosage: UNK,
     Route: 048
     Dates: end: 20140112
  2. XANAX [Suspect]
     Indication: INSOMNIA

REACTIONS (2)
  - Drug ineffective [Unknown]
  - Drug tolerance [Unknown]
